FAERS Safety Report 5901047-6 (Version None)
Quarter: 2008Q3

REPORT INFORMATION
  Report Type: 
  Country: None (occurrence: None)
  Receive Date: 20080929
  Receipt Date: 20080918
  Transmission Date: 20090109
  Serious: Yes (Other)
  Sender: FDA-Public Use
  Company Number: US-ROCHE-587108

PATIENT
  Age: 48 Year
  Sex: Female

DRUGS (5)
  1. BONIVA [Suspect]
     Indication: OSTEOPENIA
     Route: 065
     Dates: start: 20080401
  2. BONIVA [Suspect]
     Route: 065
  3. ATIVAN [Concomitant]
     Indication: SLEEP DISORDER THERAPY
  4. RESTORIL [Concomitant]
     Indication: SLEEP DISORDER THERAPY
  5. VITAMIN TAB [Concomitant]

REACTIONS (8)
  - ABDOMINAL PAIN [None]
  - CHOLECYSTECTOMY [None]
  - FAECES DISCOLOURED [None]
  - HEADACHE [None]
  - INFLUENZA LIKE ILLNESS [None]
  - MALAISE [None]
  - NASOPHARYNGITIS [None]
  - NAUSEA [None]
